FAERS Safety Report 11782624 (Version 3)
Quarter: 2016Q1

REPORT INFORMATION
  Report Type: Spontaneous
  Country: US (occurrence: US)
  Receive Date: 20151127
  Receipt Date: 20160212
  Transmission Date: 20160525
  Serious: Yes (Hospitalization)
  Sender: FDA-Public Use
  Company Number: US-ROCHE-1668605

PATIENT
  Sex: Male
  Weight: 104.42 kg

DRUGS (5)
  1. LASIX [Concomitant]
     Active Substance: FUROSEMIDE
  2. RAMIPRIL. [Concomitant]
     Active Substance: RAMIPRIL
  3. PRAVASTATIN [Concomitant]
     Active Substance: PRAVASTATIN\PRAVASTATIN SODIUM
  4. METOPROLOL. [Concomitant]
     Active Substance: METOPROLOL
  5. ESBRIET [Suspect]
     Active Substance: PIRFENIDONE
     Indication: IDIOPATHIC PULMONARY FIBROSIS
     Route: 048
     Dates: start: 20150803, end: 20160101

REACTIONS (2)
  - Cardiac failure congestive [Unknown]
  - Fatigue [Unknown]
